FAERS Safety Report 8388738-5 (Version None)
Quarter: 2012Q2

REPORT INFORMATION
  Report Type: 
  Country: None (occurrence: None)
  Receive Date: 20120528
  Receipt Date: 20120514
  Transmission Date: 20120825
  Serious: Yes (Death, Hospitalization)
  Sender: FDA-Public Use
  Company Number: GB-BRISTOL-MYERS SQUIBB COMPANY-16589749

PATIENT
  Age: 43 Year
  Sex: Male

DRUGS (10)
  1. MEROPENEM [Suspect]
     Route: 051
  2. AMIKACIN [Suspect]
  3. CYCLOPHOSPHAMIDE [Suspect]
     Indication: VASCULITIS
     Route: 048
  4. CLARITHROMYCIN [Suspect]
     Indication: INFECTION
  5. AMPHOTERICIN B [Suspect]
  6. VORICONAZOLE [Suspect]
  7. PREDNISOLONE [Suspect]
     Indication: VASCULITIS
     Route: 048
  8. CIPROFLOXACIN [Suspect]
     Indication: INFECTION
  9. TEICOPLANIN [Suspect]
     Route: 051
  10. OSELTAMIVIR PHOSPHATE [Suspect]
     Route: 051

REACTIONS (7)
  - CARDIAC FAILURE [None]
  - RENAL FAILURE [None]
  - BRONCHOPULMONARY ASPERGILLOSIS [None]
  - ENDOCARDITIS BACTERIAL [None]
  - NEUTROPENIC SEPSIS [None]
  - LIVER INJURY [None]
  - H1N1 INFLUENZA [None]
